FAERS Safety Report 13614541 (Version 4)
Quarter: 2017Q4

REPORT INFORMATION
  Report Type: Spontaneous
  Country: US (occurrence: US)
  Receive Date: 20170606
  Receipt Date: 20171222
  Transmission Date: 20180320
  Serious: Yes (Other)
  Sender: FDA-Public Use
  Company Number: US-DEPOMED, INC.-US-2017DEP001156

PATIENT

DRUGS (11)
  1. GRALISE [Suspect]
     Active Substance: GABAPENTIN
     Indication: NEURALGIA
  2. OXYCODONE [Suspect]
     Active Substance: OXYCODONE
     Indication: FACIAL PAIN
     Dosage: 15MG - 30MG PER DAY
     Route: 048
     Dates: start: 200701
  3. METHADONE [Concomitant]
     Active Substance: METHADONE HYDROCHLORIDE
     Indication: FACIAL PAIN
     Dosage: 20 MG, TID
     Dates: start: 2009
  4. REQUIP [Concomitant]
     Active Substance: ROPINIROLE HYDROCHLORIDE
     Indication: RESTLESS LEGS SYNDROME
     Dosage: UNK
     Dates: start: 201701
  5. GRALISE [Suspect]
     Active Substance: GABAPENTIN
     Indication: CONGENITAL NEUROLOGICAL DISORDER
  6. DIGOXIN. [Suspect]
     Active Substance: DIGOXIN
     Indication: LOSS OF CONSCIOUSNESS
     Dosage: .25 ?G, QD, MORNING
     Route: 048
     Dates: start: 201403
  7. TOPAMAX [Concomitant]
     Active Substance: TOPIRAMATE
     Indication: FACIAL PAIN
     Dosage: 200 MG, TID
     Dates: start: 2007
  8. L-THYROXINE                        /00068001/ [Concomitant]
     Active Substance: LEVOTHYROXINE
     Indication: HYPOTHYROIDISM
     Dosage: 125 ?G, QD
     Dates: start: 2011
  9. TRILEPTAL [Concomitant]
     Active Substance: OXCARBAZEPINE
     Indication: FACIAL PAIN
     Dosage: 300 MG, BID
  10. GRALISE [Suspect]
     Active Substance: GABAPENTIN
     Indication: TRIGEMINAL NEURALGIA
     Dosage: 1800 MG, QD, IN THE AFTERNOON
     Route: 048
     Dates: start: 201610
  11. NORTRIPTYLINE [Suspect]
     Active Substance: NORTRIPTYLINE
     Indication: FACIAL PAIN
     Dosage: 50 MG IN AFTERNOON AND 75 MG IN EVENING
     Route: 048
     Dates: start: 200701

REACTIONS (5)
  - Influenza [Unknown]
  - Diverticulitis [Unknown]
  - Product use in unapproved indication [Not Recovered/Not Resolved]
  - Drug prescribing error [Not Recovered/Not Resolved]
  - Drug ineffective [Not Recovered/Not Resolved]

NARRATIVE: CASE EVENT DATE: 201610
